FAERS Safety Report 24383195 (Version 1)
Quarter: 2024Q3

REPORT INFORMATION
  Report Type: Spontaneous
  Country: US (occurrence: None)
  Receive Date: 20240930
  Receipt Date: 20240930
  Transmission Date: 20241016
  Serious: No
  Sender: Public
  Company Number: None

PATIENT
  Age: 48 Year
  Sex: Female
  Weight: 72 kg

DRUGS (1)
  1. SULFAMETHOXAZOLE AND TRIMETHOPRIM [Suspect]
     Active Substance: SULFAMETHOXAZOLE\TRIMETHOPRIM
     Dates: start: 20240923, end: 20240924

REACTIONS (6)
  - Arthralgia [None]
  - Mouth ulceration [None]
  - Genital pain [None]
  - Hypophagia [None]
  - Speech disorder [None]
  - Product substitution issue [None]

NARRATIVE: CASE EVENT DATE: 20240926
